FAERS Safety Report 23339913 (Version 2)
Quarter: 2024Q1

REPORT INFORMATION
  Report Type: Report from Study
  Country: TW (occurrence: TW)
  Receive Date: 20231226
  Receipt Date: 20240108
  Transmission Date: 20240409
  Serious: Yes (Hospitalization)
  Sender: FDA-Public Use
  Company Number: TW-ABBVIE-5559304

PATIENT
  Age: 73 Year
  Sex: Male
  Weight: 60 kg

DRUGS (4)
  1. RINVOQ [Suspect]
     Active Substance: UPADACITINIB
     Indication: Ankylosing spondylitis
     Route: 048
     Dates: start: 20230829, end: 20231203
  2. SULFASALAZINE [Concomitant]
     Active Substance: SULFASALAZINE
     Indication: Ankylosing spondylitis
     Dates: start: 20220607
  3. MOBIC [Concomitant]
     Active Substance: MELOXICAM
     Indication: Ankylosing spondylitis
     Dates: start: 20220802
  4. BEFON [Concomitant]
     Indication: Ankylosing spondylitis

REACTIONS (4)
  - Cerebral haemorrhage [Recovering/Resolving]
  - Vomiting [Unknown]
  - Coma [Unknown]
  - Malaise [Unknown]

NARRATIVE: CASE EVENT DATE: 20231203
